FAERS Safety Report 24464508 (Version 1)
Quarter: 2024Q4

REPORT INFORMATION
  Report Type: Report from Study
  Country: US (occurrence: US)
  Receive Date: 20241018
  Receipt Date: 20241018
  Transmission Date: 20250114
  Serious: No
  Sender: ROCHE
  Company Number: US-ROCHE-3492739

PATIENT
  Age: 21 Year
  Sex: Female
  Weight: 101.15 kg

DRUGS (8)
  1. XOLAIR [Suspect]
     Active Substance: OMALIZUMAB
     Indication: Idiopathic urticaria
     Route: 058
  2. XOLAIR [Suspect]
     Active Substance: OMALIZUMAB
  3. OXCARBAZEPINE [Concomitant]
     Active Substance: OXCARBAZEPINE
     Dosage: 1 TABELET ORAL TWO TIMES DAILY
  4. ZYRTEC [Concomitant]
     Active Substance: CETIRIZINE HYDROCHLORIDE
     Dosage: 10 MG TABLET
  5. BIOTIN [Concomitant]
     Active Substance: BIOTIN
     Dosage: 10000 MCG TABLET ORAL DAILY.
  6. PEPCID [Concomitant]
     Active Substance: FAMOTIDINE
     Dosage: 20 MG TABLET ORAL DAILY
  7. LO LOESTRIN FE [Concomitant]
     Active Substance: ETHINYL ESTRADIOL\NORETHINDRONE ACETATE
  8. HYDROXYZINE HYDROCHLORIDE [Concomitant]
     Active Substance: HYDROXYZINE HYDROCHLORIDE

REACTIONS (3)
  - Urticaria [Unknown]
  - Pruritus [Unknown]
  - Lip swelling [Unknown]
